FAERS Safety Report 8298488-1 (Version None)
Quarter: 2012Q2

REPORT INFORMATION
  Report Type: 
  Country: None (occurrence: None)
  Receive Date: 20120419
  Receipt Date: 20111104
  Transmission Date: 20120825
  Serious: No
  Sender: FDA-Public Use
  Company Number: US-ABBOTT-11P-163-0872188-00

PATIENT
  Sex: Female
  Weight: 11.2 kg

DRUGS (2)
  1. LUPRON DEPOT-PED [Suspect]
     Indication: PRECOCIOUS PUBERTY
     Dates: end: 20111001
  2. LUPRON [Suspect]
     Indication: PRECOCIOUS PUBERTY
     Dates: start: 20111017

REACTIONS (1)
  - INJECTION SITE MASS [None]
